FAERS Safety Report 4298083-5 (Version None)
Quarter: 2004Q1

REPORT INFORMATION
  Report Type: 
  Country: None (occurrence: None)
  Receive Date: 20040218
  Receipt Date: 20020418
  Transmission Date: 20041129
  Serious: Yes (Other)
  Sender: FDA-Public Use
  Company Number: US-BRISTOL-MYERS SQUIBB COMPANY-11836194

PATIENT
  Age: 30 Year
  Sex: Female

DRUGS (1)
  1. STADOL [Suspect]
     Indication: MIGRAINE
     Dosage: ON STADOL FROM MAY-1992 TO NOV-93, FEB-1997 TO MAY-97, AND APR-00.
     Route: 045
     Dates: start: 19920501

REACTIONS (7)
  - CHEST PAIN [None]
  - DEPENDENCE [None]
  - DRUG ADDICT [None]
  - DYSPNOEA [None]
  - HALLUCINATION [None]
  - RESPIRATORY RATE DECREASED [None]
  - SUICIDAL IDEATION [None]
